FAERS Safety Report 5926822-3 (Version None)
Quarter: 2008Q4

REPORT INFORMATION
  Report Type: 
  Country: None (occurrence: None)
  Receive Date: 20081022
  Receipt Date: 20080818
  Transmission Date: 20090506
  Serious: Yes (Other)
  Sender: FDA-Public Use
  Company Number: US-WYE-H06420708

PATIENT
  Sex: Male

DRUGS (3)
  1. ROBITUSSIN COUGH LONG ACTING [Suspect]
     Indication: DRUG ABUSE
     Dosage: NOT PROVIDED
     Route: 048
  2. SUDAFED 12 HOUR [Suspect]
     Indication: DRUG ABUSE
     Dosage: NOT PROVIDED
     Route: 048
  3. ETHANOL [Concomitant]
     Dosage: NOT PROVIDED
     Route: 048

REACTIONS (1)
  - DRUG ABUSE [None]
